FAERS Safety Report 6698722-5 (Version None)
Quarter: 2010Q2

REPORT INFORMATION
  Report Type: 
  Country: None (occurrence: None)
  Receive Date: 20100427
  Receipt Date: 20090902
  Transmission Date: 20101027
  Serious: No
  Sender: FDA-Public Use
  Company Number: US-ASTRAZENECA-2009UW18148

PATIENT
  Age: 87 Year
  Sex: Female
  Weight: 59 kg

DRUGS (3)
  1. ZOMIG-ZMT [Suspect]
     Route: 048
     Dates: start: 20050101
  2. ESTRADIOL [Concomitant]
  3. TYLENOL-500 [Concomitant]
     Indication: SINUS DISORDER

REACTIONS (3)
  - GLOSSODYNIA [None]
  - INADEQUATE ANALGESIA [None]
  - OROPHARYNGEAL PAIN [None]
